FAERS Safety Report 6080032-0 (Version None)
Quarter: 2009Q1

REPORT INFORMATION
  Report Type: 
  Country: None (occurrence: None)
  Receive Date: 20090217
  Receipt Date: 20090127
  Transmission Date: 20090719
  Serious: Yes (Life-Threatening, Hospitalization)
  Sender: FDA-Public Use
  Company Number: ES-BAXTER-2009BH001321

PATIENT
  Age: 26 Year
  Sex: Female

DRUGS (5)
  1. ENDOXAN BAXTER [Suspect]
     Indication: NON-HODGKIN'S LYMPHOMA
     Dosage: 4? CICLO
     Route: 065
     Dates: start: 20070101, end: 20070101
  2. MABTHERA [Interacting]
     Indication: NON-HODGKIN'S LYMPHOMA
     Dosage: 5? CICLO
     Route: 065
     Dates: start: 20070101, end: 20070101
  3. VINCRISTINE SULFATE [Interacting]
     Indication: NON-HODGKIN'S LYMPHOMA
     Dosage: 4? CICLO
     Route: 065
     Dates: start: 20070101, end: 20070101
  4. PREDNISONE [Interacting]
     Indication: NON-HODGKIN'S LYMPHOMA
     Dosage: 4? CICLO
     Route: 065
     Dates: start: 20070101, end: 20070101
  5. FLUDARABINE PHOSPHATE [Interacting]
     Indication: NON-HODGKIN'S LYMPHOMA
     Dosage: 3? CICLO
     Route: 065
     Dates: start: 20070101, end: 20070101

REACTIONS (2)
  - COLITIS ULCERATIVE [None]
  - LEUKOPENIA [None]
